FAERS Safety Report 17658471 (Version 2)
Quarter: 2020Q4

REPORT INFORMATION
  Report Type: Report from Study
  Country: CA (occurrence: CA)
  Receive Date: 20200412
  Receipt Date: 20201221
  Transmission Date: 20210113
  Serious: Yes (Hospitalization, Other)
  Sender: FDA-Public Use
  Company Number: CA-HLS-202000275

PATIENT
  Age: 66 Year
  Sex: Male
  Weight: 70 kg

DRUGS (1)
  1. CLOZARIL [Suspect]
     Active Substance: CLOZAPINE
     Indication: PRODUCT USED FOR UNKNOWN INDICATION
     Dosage: DOSAGE REDUCED TO 250 MG TID FROM 300 MG TID
     Route: 065
     Dates: start: 19950511

REACTIONS (53)
  - Myelocyte count increased [Unknown]
  - Chronic obstructive pulmonary disease [Unknown]
  - Dehydration [Unknown]
  - Type 2 diabetes mellitus [Unknown]
  - Haemoglobin decreased [Unknown]
  - Mobility decreased [Recovering/Resolving]
  - Troponin T increased [Unknown]
  - Base excess increased [Unknown]
  - PCO2 increased [Unknown]
  - Metamyelocyte count increased [Recovered/Resolved]
  - Fall [Unknown]
  - Hypotension [Unknown]
  - Lymphocyte count decreased [Unknown]
  - Schizophrenia [Unknown]
  - Urinary tract infection [Unknown]
  - Blood albumin decreased [Recovered/Resolved]
  - Lethargy [Unknown]
  - Hypotension [Recovered/Resolved]
  - Lung opacity [Unknown]
  - Seizure [Unknown]
  - Protein total decreased [Recovered/Resolved]
  - Neutrophil toxic granulation present [Unknown]
  - Benign prostatic hyperplasia [Unknown]
  - Blood calcium decreased [Unknown]
  - Blood creatine phosphokinase [Unknown]
  - Muscular weakness [Unknown]
  - Pneumatosis intestinalis [Recovered/Resolved]
  - Syncope [Unknown]
  - Alanine aminotransferase decreased [Recovered/Resolved]
  - Punctate basophilia [Unknown]
  - Blood chloride decreased [Unknown]
  - Glomerular filtration rate decreased [Unknown]
  - Hypovolaemia [Unknown]
  - Pleural effusion [Unknown]
  - Pneumonia [Recovered/Resolved]
  - Red blood cell count decreased [Unknown]
  - Blood sodium decreased [Unknown]
  - Blood bilirubin [Recovered/Resolved]
  - Toxicity to various agents [Unknown]
  - Coma scale abnormal [Unknown]
  - Hypochromasia [Unknown]
  - Blood lactic acid decreased [Unknown]
  - Mean cell haemoglobin concentration [Unknown]
  - Lung infiltration [Recovered/Resolved]
  - Asthenia [Recovering/Resolving]
  - Congestive cardiomyopathy [Unknown]
  - Intestinal dilatation [Unknown]
  - Blood lactic acid increased [Recovered/Resolved]
  - Lipase decreased [Unknown]
  - Polychromasia [Unknown]
  - Activated partial thromboplastin time prolonged [Unknown]
  - Gastrooesophageal reflux disease [Unknown]
  - Haematocrit decreased [Unknown]

NARRATIVE: CASE EVENT DATE: 201710
